FAERS Safety Report 9897236 (Version 1)
Quarter: 2014Q1

REPORT INFORMATION
  Report Type: Spontaneous
  Country: US (occurrence: US)
  Receive Date: 20140214
  Receipt Date: 20140214
  Transmission Date: 20141002
  Serious: No
  Sender: FDA-Public Use
  Company Number: US-009507513-1402USA006841

PATIENT
  Sex: Female

DRUGS (1)
  1. NUVARING [Suspect]
     Dosage: 3 WEEKS IN 2 WEEKS OUT

REACTIONS (1)
  - Inappropriate schedule of drug administration [Unknown]
